FAERS Safety Report 6822663-3 (Version None)
Quarter: 2010Q3

REPORT INFORMATION
  Report Type: 
  Country: None (occurrence: None)
  Receive Date: 20100708
  Receipt Date: 20100625
  Transmission Date: 20110219
  Serious: No
  Sender: FDA-Public Use
  Company Number: US-TEVA-240245USA

PATIENT
  Sex: Male
  Weight: 84.444 kg

DRUGS (3)
  1. SALBUTAMOL SULFATE INHALATION, 0.09 MG [Suspect]
     Route: 055
     Dates: start: 20100611, end: 20100618
  2. SERETIDE [Concomitant]
  3. SIMVASTATIN [Concomitant]

REACTIONS (1)
  - COUGH [None]
